FAERS Safety Report 5336914-8 (Version None)
Quarter: 2007Q2

REPORT INFORMATION
  Report Type: 
  Country: None (occurrence: None)
  Receive Date: 20070529
  Receipt Date: 20070516
  Transmission Date: 20071010
  Serious: Yes (Hospitalization, Other)
  Sender: FDA-Public Use
  Company Number: PHNU2007DE00782

PATIENT
  Age: 39 Year
  Sex: Female
  Weight: 68 kg

DRUGS (4)
  1. ENALAPRIL MALEATE [Concomitant]
     Indication: RENAL HYPERTENSION
     Dosage: 2.5 MG DAILY
     Route: 048
     Dates: end: 20060901
  2. HYDROCHLOROTHIAZIDE [Concomitant]
     Indication: RENAL HYPERTENSION
     Dosage: 25 MG DAILY
     Route: 048
     Dates: end: 20060901
  3. FUROSEMIDE [Concomitant]
     Indication: RENAL HYPERTENSION
     Dosage: 80 MG DAILY
     Route: 048
     Dates: end: 20060901
  4. CYCLOSPORINE [Suspect]
     Indication: NEPHROTIC SYNDROME
     Dosage: 300 MG DAILY
     Route: 048
     Dates: start: 20060105

REACTIONS (11)
  - BLOOD CREATININE INCREASED [None]
  - COLITIS ULCERATIVE [None]
  - DIARRHOEA HAEMORRHAGIC [None]
  - DISEASE RECURRENCE [None]
  - DRUG LEVEL DECREASED [None]
  - HAEMATOCHEZIA [None]
  - HAEMOGLOBIN DECREASED [None]
  - ILEITIS [None]
  - NEPHROTIC SYNDROME [None]
  - PROCTITIS [None]
  - RENAL FAILURE ACUTE [None]
